FAERS Safety Report 11037945 (Version 2)
Quarter: 2015Q2

REPORT INFORMATION
  Report Type: Spontaneous
  Country: US (occurrence: US)
  Receive Date: 20150416
  Receipt Date: 20150514
  Transmission Date: 20150821
  Serious: Yes (Other)
  Sender: FDA-Public Use
  Company Number: US-009507513-1504USA004961

PATIENT
  Age: 16 Year
  Sex: Female
  Weight: 59.41 kg

DRUGS (1)
  1. IMPLANON [Suspect]
     Active Substance: ETONOGESTREL
     Indication: CONTRACEPTION
     Dosage: UNK
     Route: 059
     Dates: start: 20091111, end: 20121227

REACTIONS (6)
  - Device difficult to use [Recovered/Resolved]
  - Surgery [Recovered/Resolved]
  - Incision site swelling [Recovered/Resolved]
  - Vaginal haemorrhage [Recovered/Resolved]
  - Sedative therapy [Recovered/Resolved]
  - Medical device complication [Recovered/Resolved]

NARRATIVE: CASE EVENT DATE: 201111
